FAERS Safety Report 4962148-2 (Version None)
Quarter: 2006Q2

REPORT INFORMATION
  Report Type: 
  Country: None (occurrence: None)
  Receive Date: 20060404
  Receipt Date: 20051207
  Transmission Date: 20061013
  Serious: Yes (Hospitalization, Disabling)
  Sender: FDA-Public Use
  Company Number: US-MERCK-0512USA01280

PATIENT
  Sex: Female
  Weight: 67 kg

DRUGS (6)
  1. VIOXX [Suspect]
     Indication: FIBROMYALGIA
     Route: 048
     Dates: start: 20021104, end: 20040212
  2. VIOXX [Suspect]
     Route: 048
     Dates: start: 19990729, end: 19990819
  3. VIOXX [Suspect]
     Route: 048
     Dates: start: 19990819, end: 20040212
  4. VIOXX [Suspect]
     Indication: PERIARTHRITIS
     Route: 048
     Dates: start: 20021104, end: 20040212
  5. VIOXX [Suspect]
     Route: 048
     Dates: start: 19990729, end: 19990819
  6. VIOXX [Suspect]
     Route: 048
     Dates: start: 19990819, end: 20040212

REACTIONS (12)
  - ANXIETY [None]
  - BACK INJURY [None]
  - BRONCHITIS [None]
  - DEPRESSION [None]
  - ESSENTIAL HYPERTENSION [None]
  - FALL [None]
  - FIBROCYSTIC BREAST DISEASE [None]
  - GASTROOESOPHAGEAL REFLUX DISEASE [None]
  - NECK INJURY [None]
  - PULMONARY EMBOLISM [None]
  - ROAD TRAFFIC ACCIDENT [None]
  - THROMBOSIS [None]
